FAERS Safety Report 19747661 (Version 3)
Quarter: 2021Q3

REPORT INFORMATION
  Report Type: Spontaneous
  Country: BR (occurrence: BR)
  Receive Date: 20210825
  Receipt Date: 20210909
  Transmission Date: 20211014
  Serious: Yes (Other)
  Sender: FDA-Public Use
  Company Number: NVSC2021BR189715

PATIENT
  Age: 59 Year
  Sex: Male
  Weight: 58 kg

DRUGS (9)
  1. RITALINA [Suspect]
     Active Substance: METHYLPHENIDATE HYDROCHLORIDE
     Dosage: 10 MG
     Route: 065
     Dates: start: 20210816
  2. ESCITALOPRAM [Suspect]
     Active Substance: ESCITALOPRAM OXALATE
     Indication: DEPRESSION
     Dosage: 1 DF, QD
     Route: 065
  3. RITALINA [Suspect]
     Active Substance: METHYLPHENIDATE HYDROCHLORIDE
     Dosage: UNK
     Route: 048
  4. RITALINA LA [Suspect]
     Active Substance: METHYLPHENIDATE HYDROCHLORIDE
     Dosage: 40 MG, QD
     Route: 048
     Dates: start: 202108
  5. MERITOR [Concomitant]
     Active Substance: GLIMEPIRIDE\METFORMIN
     Indication: DIABETES MELLITUS
     Dosage: 1 DF, QD (FROM 3 YEARS AGO)
     Route: 048
  6. GLYPHAGEN [Concomitant]
     Indication: DIABETES MELLITUS
     Dosage: 1 DF, BID (FROM 3 YEARS AGO)
     Route: 048
  7. RITALINA LA [Suspect]
     Active Substance: METHYLPHENIDATE HYDROCHLORIDE
     Dosage: 20 MG, QD
     Route: 048
     Dates: end: 202108
  8. RITALINA [Suspect]
     Active Substance: METHYLPHENIDATE HYDROCHLORIDE
     Indication: ATTENTION DEFICIT HYPERACTIVITY DISORDER
     Dosage: 1 DF (STARTED 2 YEARS AGO AND STOPPED 1 OR 1.5 YEAR AGO)
     Route: 065
  9. RITALINA LA [Suspect]
     Active Substance: METHYLPHENIDATE HYDROCHLORIDE
     Indication: ATTENTION DEFICIT HYPERACTIVITY DISORDER
     Dosage: 20 MG
     Route: 065

REACTIONS (12)
  - Attention deficit hyperactivity disorder [Not Recovered/Not Resolved]
  - Visual impairment [Not Recovered/Not Resolved]
  - Depression [Unknown]
  - Xanthopsia [Not Recovered/Not Resolved]
  - Wheezing [Recovered/Resolved]
  - Drug ineffective [Not Recovered/Not Resolved]
  - Hypoacusis [Unknown]
  - Wrong technique in product usage process [Recovered/Resolved]
  - Diabetes mellitus [Not Recovered/Not Resolved]
  - Hemianopia [Not Recovered/Not Resolved]
  - Tinnitus [Not Recovered/Not Resolved]
  - Headache [Not Recovered/Not Resolved]

NARRATIVE: CASE EVENT DATE: 2021
